FAERS Safety Report 9240019 (Version 2)
Quarter: 2013Q2

REPORT INFORMATION
  Report Type: Report from Study
  Country: MX (occurrence: MX)
  Receive Date: 20130418
  Receipt Date: 20130502
  Transmission Date: 20140414
  Serious: Yes (Death)
  Sender: FDA-Public Use
  Company Number: MX-ROCHE-1083844

PATIENT
  Age: 47 Year
  Sex: Female
  Weight: 75.5 kg

DRUGS (3)
  1. HERCEPTIN [Suspect]
     Indication: BREAST CANCER
     Route: 042
     Dates: start: 20120608
  2. LOSARTAN [Concomitant]
     Indication: HYPERTENSION
     Route: 048
  3. CAPTOPRIL [Concomitant]
     Indication: HYPERTENSION
     Route: 048

REACTIONS (7)
  - Disease progression [Fatal]
  - Oedema peripheral [Not Recovered/Not Resolved]
  - Haematoma [Not Recovered/Not Resolved]
  - Breast pain [Not Recovered/Not Resolved]
  - Headache [Not Recovered/Not Resolved]
  - Decreased appetite [Unknown]
  - Vomiting [Unknown]
